FAERS Safety Report 13088730 (Version 1)
Quarter: 2017Q1

REPORT INFORMATION
  Report Type: Spontaneous
  Country: FR (occurrence: FR)
  Receive Date: 20170105
  Receipt Date: 20170105
  Transmission Date: 20170428
  Serious: Yes (Hospitalization)
  Sender: FDA-Public Use
  Company Number: FR-PFIZER INC-2016603706

PATIENT
  Age: 31 Year
  Sex: Male

DRUGS (8)
  1. TERCIAN /00759301/ [Suspect]
     Active Substance: CYAMEMAZINE
     Indication: INSOMNIA
     Dosage: 1 UP TO 2 PER DAY AS NEEDED
  2. TERCIAN /00759301/ [Suspect]
     Active Substance: CYAMEMAZINE
     Dosage: UNK
     Dates: start: 2016, end: 2016
  3. TERCIAN /00759301/ [Suspect]
     Active Substance: CYAMEMAZINE
     Dosage: UNK
     Dates: start: 2016, end: 2016
  4. ZOLOFT [Suspect]
     Active Substance: SERTRALINE HYDROCHLORIDE
     Dosage: 100 MG, 1X/DAY
  5. ZOLOFT [Suspect]
     Active Substance: SERTRALINE HYDROCHLORIDE
     Dosage: UNK
     Dates: start: 2016, end: 2016
  6. SERTRALINE [Suspect]
     Active Substance: SERTRALINE HYDROCHLORIDE
     Dosage: 175 MG
     Route: 002
     Dates: start: 2016
  7. METHADONE AP HP [Suspect]
     Active Substance: METHADONE HYDROCHLORIDE
     Dosage: UNK
     Dates: start: 2016, end: 2016
  8. METHADONE AP HP [Suspect]
     Active Substance: METHADONE HYDROCHLORIDE
     Dosage: 70 MG, DAILY

REACTIONS (3)
  - Suicide attempt [Unknown]
  - Overdose [Unknown]
  - Coma [Recovered/Resolved]

NARRATIVE: CASE EVENT DATE: 2016
